FAERS Safety Report 20351724 (Version 1)
Quarter: 2022Q1

REPORT INFORMATION
  Report Type: Spontaneous
  Country: US (occurrence: None)
  Receive Date: 20220119
  Receipt Date: 20220119
  Transmission Date: 20220424
  Serious: No
  Sender: FDA-Public Use
  Company Number: 2021A896242

PATIENT
  Age: 26085 Day
  Sex: Female
  Weight: 53.5 kg

DRUGS (1)
  1. PULMICORT FLEXHALER [Suspect]
     Active Substance: BUDESONIDE
     Indication: Bronchitis
     Dosage: 90 MCG ONE OR TWO RESPIRATORY INHALATION TWICE DAILY
     Route: 055
     Dates: start: 20211221

REACTIONS (5)
  - SARS-CoV-2 test positive [Unknown]
  - Off label use [Unknown]
  - Intentional device use issue [Unknown]
  - Product use issue [Unknown]
  - Incorrect dose administered by device [Unknown]

NARRATIVE: CASE EVENT DATE: 20211221
